FAERS Safety Report 20901239 (Version 11)
Quarter: 2022Q4

REPORT INFORMATION
  Report Type: Report from Study
  Country: US (occurrence: US)
  Receive Date: 20220601
  Receipt Date: 20221212
  Transmission Date: 20230113
  Serious: Yes (Hospitalization)
  Sender: FDA-Public Use
  Company Number: US-GLAXOSMITHKLINE-US2022AMR085010

PATIENT

DRUGS (1)
  1. BELANTAMAB MAFODOTIN [Suspect]
     Active Substance: BELANTAMAB MAFODOTIN
     Indication: Plasma cell myeloma
     Dosage: 210 MG
     Route: 042
     Dates: start: 20220525

REACTIONS (6)
  - Pyrexia [Recovered/Resolved]
  - Tachycardia [Recovered/Resolved]
  - Visual acuity reduced [Not Recovered/Not Resolved]
  - Keratopathy [Unknown]
  - Corneal epithelial microcysts [Unknown]
  - Dry eye [Unknown]

NARRATIVE: CASE EVENT DATE: 20220525
